FAERS Safety Report 4889591-4 (Version None)
Quarter: 2006Q1

REPORT INFORMATION
  Report Type: 
  Country: None (occurrence: None)
  Receive Date: 20060120
  Receipt Date: 20060105
  Transmission Date: 20060701
  Serious: Yes (Other)
  Sender: FDA-Public Use
  Company Number: L06-ESP-00053-01

PATIENT

DRUGS (2)
  1. CARBAMAZEPINE [Suspect]
  2. CLARITHROMYCIN [Suspect]

REACTIONS (2)
  - DRUG INTERACTION [None]
  - HYPONATRAEMIA [None]
